FAERS Safety Report 25744164 (Version 4)
Quarter: 2025Q4

REPORT INFORMATION
  Report Type: Spontaneous
  Country: US (occurrence: US)
  Receive Date: 20250901
  Receipt Date: 20251127
  Transmission Date: 20260117
  Serious: Yes (Hospitalization)
  Sender: BIOGEN
  Company Number: US-BIOGEN-2025BI01322056

PATIENT
  Age: 23 Year
  Sex: Male

DRUGS (3)
  1. SKYCLARYS [Suspect]
     Active Substance: OMAVELOXOLONE
     Indication: Product used for unknown indication
     Dosage: EXPIRATION DATE:31JAN2029
     Dates: start: 20230707
  2. SKYCLARYS [Suspect]
     Active Substance: OMAVELOXOLONE
     Indication: Friedreich^s ataxia
  3. SKYCLARYS [Suspect]
     Active Substance: OMAVELOXOLONE
     Dates: start: 20230503, end: 20250820

REACTIONS (2)
  - Atrial fibrillation [Recovered/Resolved]
  - Hypervolaemia [Unknown]

NARRATIVE: CASE EVENT DATE: 20250801
